FAERS Safety Report 20850333 (Version 2)
Quarter: 2022Q2

REPORT INFORMATION
  Report Type: Spontaneous
  Country: US (occurrence: US)
  Receive Date: 20220519
  Receipt Date: 20220519
  Transmission Date: 20220721
  Serious: Yes (Other)
  Sender: FDA-Public Use
  Company Number: US-GILEAD-2022-0581844

PATIENT
  Sex: Male

DRUGS (3)
  1. BIKTARVY [Suspect]
     Active Substance: BICTEGRAVIR SODIUM\EMTRICITABINE\TENOFOVIR ALAFENAMIDE FUMARATE
     Indication: HIV infection
  2. YERVOY [Concomitant]
     Active Substance: IPILIMUMAB
  3. OPDIVO [Concomitant]
     Active Substance: NIVOLUMAB

REACTIONS (5)
  - Oesophageal carcinoma [Unknown]
  - Barrett^s oesophagus [Recovered/Resolved]
  - Drug ineffective [Unknown]
  - Blood HIV RNA increased [Unknown]
  - Wrong technique in product usage process [Not Recovered/Not Resolved]
